FAERS Safety Report 14781187 (Version 1)
Quarter: 2018Q2

REPORT INFORMATION
  Report Type: Spontaneous
  Country: US (occurrence: US)
  Receive Date: 20180419
  Receipt Date: 20180419
  Transmission Date: 20180711
  Serious: Yes (Hospitalization, Other)
  Sender: FDA-Public Use
  Company Number: US-INDIVIOR LIMITED-INDV-110292-2018

PATIENT
  Sex: Male

DRUGS (6)
  1. BUPRENORPHINE/NALOXONE GENERIC [Suspect]
     Active Substance: BUPRENORPHINE\NALOXONE
     Indication: DRUG WITHDRAWAL SYNDROME
     Dosage: 13  1.4-0.63 MG TABLETS
     Route: 065
  2. BUPRENORPHINE/NALOXONE BRAND UNSPECIFIED [Suspect]
     Active Substance: BUPRENORPHINE\NALOXONE
     Indication: DRUG WITHDRAWAL SYNDROME
     Dosage: THREE DOSES OF 2-0.5 MG ON EACH HOSPITALIZATION DAY 1 AND 2
     Route: 065
  3. LOPERAMIDE [Suspect]
     Active Substance: LOPERAMIDE
     Indication: DRUG WITHDRAWAL SYNDROME
     Dosage: 250 LOPERAMIDE 2 MG TABLETS/DAY
     Route: 048
  4. BUPRENORPHINE/NALOXONE BRAND UNSPECIFIED [Suspect]
     Active Substance: BUPRENORPHINE\NALOXONE
     Dosage: 5.7-1.4 MG/D MAINTENANCE DOSE
     Route: 065
  5. LOPERAMIDE [Suspect]
     Active Substance: LOPERAMIDE
     Dosage: WEANED DOWN AND INGESTED 140MG
     Route: 048
  6. LOPERAMIDE [Suspect]
     Active Substance: LOPERAMIDE
     Dosage: 100MG,UNK
     Route: 048

REACTIONS (3)
  - Drug abuse [Unknown]
  - Drug withdrawal syndrome [Unknown]
  - Electrocardiogram QT prolonged [Unknown]
